FAERS Safety Report 17876466 (Version 1)
Quarter: 2020Q2

REPORT INFORMATION
  Report Type: Spontaneous
  Country: IL (occurrence: IL)
  Receive Date: 20200609
  Receipt Date: 20200609
  Transmission Date: 20200714
  Serious: Yes (Other)
  Sender: FDA-Public Use
  Company Number: IL-TOLMAR, INC.-2019IL005361

PATIENT

DRUGS (1)
  1. ELIGARD [Suspect]
     Active Substance: LEUPROLIDE ACETATE
     Indication: PROSTATE CANCER
     Dosage: 45 MG, UNK
     Route: 065
     Dates: start: 20190523, end: 20190523

REACTIONS (5)
  - Cerebrovascular accident [Unknown]
  - Product preparation error [Unknown]
  - Syringe issue [Unknown]
  - Underdose [Unknown]
  - Product administration error [Unknown]

NARRATIVE: CASE EVENT DATE: 20190523
